FAERS Safety Report 11941537 (Version 1)
Quarter: 2016Q1

REPORT INFORMATION
  Report Type: Other
  Country: US (occurrence: US)
  Receive Date: 20160122
  Receipt Date: 20160122
  Transmission Date: 20160526
  Serious: Yes (Congenital Anomaly)
  Sender: FDA-Public Use
  Company Number: US-GUTHY-RENKER LLC-1046827

PATIENT
  Age: 61 Year
  Sex: Female

DRUGS (4)
  1. ALLERGY SHOTS [Concomitant]
     Active Substance: UNSPECIFIED INGREDIENT
  2. DIABETIC MEDICATIONS [Concomitant]
  3. ASTHMA INHALER [Concomitant]
     Active Substance: UNSPECIFIED INGREDIENT
  4. MEANINGFUL BEAUTY CINDY CRAWFORD ANTIOXIDANT SPF 20 UVA/UVB [Suspect]
     Active Substance: AVOBENZONE\OCTINOXATE\OCTISALATE\OXYBENZONE
     Indication: PROPHYLAXIS AGAINST SOLAR RADIATION
     Route: 061

REACTIONS (2)
  - Urticaria [Recovered/Resolved]
  - Asthma [None]

NARRATIVE: CASE EVENT DATE: 20151130
